FAERS Safety Report 7700256-3 (Version None)
Quarter: 2011Q3

REPORT INFORMATION
  Report Type: 
  Country: None (occurrence: None)
  Receive Date: 20110822
  Receipt Date: 20110809
  Transmission Date: 20111222
  Serious: Yes (Other)
  Sender: FDA-Public Use
  Company Number: US-JNJFOC-20110807549

PATIENT
  Age: 1 Year
  Sex: Female
  Weight: 9.53 kg

DRUGS (1)
  1. DESITIN MAXIMUM STRENGTH ORIGINAL PASTE [Suspect]
     Indication: DERMATITIS DIAPER
     Dosage: AT EVERY DIAPER CHANGE; SIZE OF A QUARTER
     Route: 061
     Dates: end: 20110101

REACTIONS (3)
  - SKIN EXFOLIATION [None]
  - RASH [None]
  - APPLICATION SITE BURN [None]
